FAERS Safety Report 4743419-1 (Version None)
Quarter: 2005Q3

REPORT INFORMATION
  Report Type: 
  Country: None (occurrence: None)
  Receive Date: 20050812
  Receipt Date: 20050808
  Transmission Date: 20060218
  Serious: Yes (Hospitalization)
  Sender: FDA-Public Use
  Company Number: US-BOEHRINGER INGELHEIM PHARMACEUTICALS, INC.-2005-BP-13532BP

PATIENT
  Age: 72 Year
  Sex: Male

DRUGS (7)
  1. FLOMAX [Suspect]
     Indication: URINARY RETENTION
     Route: 048
     Dates: start: 20040401, end: 20040401
  2. CARDIZEM [Concomitant]
  3. ACCUPRIL [Concomitant]
  4. TENORMEN [Concomitant]
  5. VITAMINS [Concomitant]
  6. K-ER [Concomitant]
  7. HYDROCHLOROTHIAZIDE [Concomitant]

REACTIONS (5)
  - EXTRASYSTOLES [None]
  - HYPERHIDROSIS [None]
  - HYPOTENSION [None]
  - JOINT STIFFNESS [None]
  - LETHARGY [None]
